FAERS Safety Report 8905043 (Version 3)
Quarter: 2012Q4

REPORT INFORMATION
  Report Type: 
  Country: BR (occurrence: BR)
  Receive Date: 20121112
  Receipt Date: 20121211
  Transmission Date: 20130627
  Serious: Yes (Hospitalization, Other)
  Sender: FDA-Public Use
  Company Number: PHHY2012BR103528

PATIENT
  Sex: Female
  Weight: 86 kg

DRUGS (7)
  1. FORASEQ [Suspect]
     Indication: ASTHMA
     Dosage: 1 DF, QD
  2. FORASEQ [Suspect]
     Dosage: 1 DF, QD
     Dates: start: 201210
  3. ALENIA [Suspect]
     Indication: ASTHMA
     Dosage: 1 DF, BID
  4. TRAMAL [Concomitant]
     Indication: PAIN
     Dosage: 1 DF, TID (every 3 hours)
     Route: 048
  5. TYLENOL [Concomitant]
     Indication: PAIN
     Dosage: 1 DF, QID (every 6 hours)
     Route: 048
  6. PURAN T4 [Concomitant]
     Indication: THYROID DISORDER
     Dosage: 1 DF, in the morning
     Route: 048
  7. CALCIUM + VITAMIN D [Concomitant]
     Indication: BONE DECALCIFICATION
     Dosage: 1 DF, UNK
     Route: 048

REACTIONS (3)
  - Osteonecrosis [Recovering/Resolving]
  - Back pain [Recovering/Resolving]
  - Dyspnoea [Unknown]
